FAERS Safety Report 7446029-0 (Version None)
Quarter: 2011Q2

REPORT INFORMATION
  Report Type: 
  Country: None (occurrence: None)
  Receive Date: 20110429
  Receipt Date: 20110420
  Transmission Date: 20111010
  Serious: Yes (Other)
  Sender: FDA-Public Use
  Company Number: US-GENZYME-MOZO-1000504

PATIENT

DRUGS (5)
  1. MOZOBIL [Suspect]
     Indication: ACUTE MYELOID LEUKAEMIA
     Dosage: 240 MCG/KG, QD
     Route: 058
     Dates: start: 20101006
  2. MOZOBIL [Suspect]
     Dosage: 240 MCG/KG, QD
     Route: 058
  3. CLOLAR [Suspect]
     Indication: ACUTE MYELOID LEUKAEMIA
     Dosage: 30 MG/M2, QD
     Route: 042
     Dates: start: 20101006
  4. CLOLAR [Suspect]
     Dosage: 15 MG/M2, QD
     Route: 042
  5. CLOLAR [Suspect]
     Dosage: 20 MG/M2, QD
     Route: 042
     Dates: start: 20101116

REACTIONS (6)
  - LIVER FUNCTION TEST ABNORMAL [None]
  - BLOOD PRESSURE FLUCTUATION [None]
  - ATRIAL FIBRILLATION [None]
  - PLATELET COUNT DECREASED [None]
  - HEART RATE ABNORMAL [None]
  - NEUTROPENIA [None]
